FAERS Safety Report 24726540 (Version 1)
Quarter: 2024Q4

REPORT INFORMATION
  Report Type: Spontaneous
  Country: US (occurrence: None)
  Receive Date: 20241211
  Receipt Date: 20241211
  Transmission Date: 20250115
  Serious: Yes (Hospitalization)
  Sender: Public
  Company Number: None

PATIENT
  Sex: Male

DRUGS (11)
  1. LENALIDOMIDE [Suspect]
     Active Substance: LENALIDOMIDE
     Indication: Plasma cell myeloma
     Dosage: OTHER QUANTITY : TAKE 1 CAPSULE;?OTHER FREQUENCY : DAILY ON DAYS 1-21 OF EACH 28 DAY CYCLE;?
     Route: 048
     Dates: start: 20240921
  2. ALLOPURINOL [Concomitant]
     Active Substance: ALLOPURINOL
  3. ATORVASTATIN [Concomitant]
     Active Substance: ATORVASTATIN
  4. BRIMONIDINE SOL [Concomitant]
  5. COENZYME Q10 [Concomitant]
     Active Substance: DIETARY SUPPLEMENT\UBIDECARENONE
  6. DARZALEX  SOL [Concomitant]
  7. DEXAMETHASONE [Concomitant]
     Active Substance: DEXAMETHASONE
  8. DORZOLAMI DE SOL [Concomitant]
  9. ELIQUIS [Concomitant]
     Active Substance: APIXABAN
  10. FUROSEMIDE [Concomitant]
     Active Substance: FUROSEMIDE
  11. GLUCOSAMINE [Concomitant]
     Active Substance: GLUCOSAMINE

REACTIONS (3)
  - Fall [None]
  - Cerebral haemorrhage [None]
  - Therapy interrupted [None]
